FAERS Safety Report 7893694-X (Version None)
Quarter: 2011Q4

REPORT INFORMATION
  Report Type: 
  Country: None (occurrence: None)
  Receive Date: 20111104
  Receipt Date: 20111031
  Transmission Date: 20120403
  Serious: Yes (Other)
  Sender: FDA-Public Use
  Company Number: US-PFIZER INC-2011253445

PATIENT
  Sex: Female

DRUGS (4)
  1. GLIPIZIDE [Suspect]
     Dosage: UNK
  2. JANUVIA [Interacting]
     Dosage: UNK
  3. LANTUS [Interacting]
     Dosage: 20 IU, DAILY
     Route: 058
     Dates: start: 20110101
  4. LANTUS [Interacting]
     Indication: TYPE 2 DIABETES MELLITUS
     Dosage: 10 IU, DAILY
     Route: 058
     Dates: start: 20110829

REACTIONS (4)
  - CONDITION AGGRAVATED [None]
  - BLOOD GLUCOSE INCREASED [None]
  - PAIN IN EXTREMITY [None]
  - DRUG INTERACTION [None]
